FAERS Safety Report 17282882 (Version 1)
Quarter: 2020Q1

REPORT INFORMATION
  Report Type: Report from Study
  Country: CN (occurrence: CN)
  Receive Date: 20200117
  Receipt Date: 20200117
  Transmission Date: 20200409
  Serious: Yes (Hospitalization)
  Sender: FDA-Public Use
  Company Number: CN-ROCHE-2446690

PATIENT
  Age: 48 Year
  Sex: Female
  Weight: 60 kg

DRUGS (17)
  1. BEVACIZUMAB. [Suspect]
     Active Substance: BEVACIZUMAB
     Indication: NEOPLASM MALIGNANT
     Dosage: DATE OF MOST RECENT DOSE OF BEVACIZUMAB PRIOR TO AE ONSET 9/OCT/2019
     Route: 042
     Dates: start: 20190911
  2. ORNIDAZOLE;SODIUM CHLORIDE [Concomitant]
     Route: 065
  3. GLUCOSE [Concomitant]
     Active Substance: DEXTROSE
  4. PAPAVERINE HYDROCHLORIDE. [Concomitant]
     Active Substance: PAPAVERINE HYDROCHLORIDE
  5. POTASSIUM CHLORIDE. [Concomitant]
     Active Substance: POTASSIUM CHLORIDE
     Route: 065
     Dates: start: 20191009, end: 20191010
  6. PACLITAXEL. [Suspect]
     Active Substance: PACLITAXEL
     Indication: NEOPLASM MALIGNANT
     Dosage: DATE OF MOST RECENT DOSE (270 MG) OF PACLITAXEL PRIOR TO AE ONSET 9/OCT/2019
     Route: 042
     Dates: start: 20190821
  7. POTASSIUM CHLORIDE. [Concomitant]
     Active Substance: POTASSIUM CHLORIDE
  8. DEXAMETHASONE SODIUM PHOSPHATE. [Concomitant]
     Active Substance: DEXAMETHASONE SODIUM PHOSPHATE
     Route: 065
     Dates: start: 20191009, end: 20191010
  9. RAMOSETRON HYDROCHLORIDE [Concomitant]
     Active Substance: RAMOSETRON HYDROCHLORIDE
     Route: 065
     Dates: start: 20191009, end: 20191010
  10. ORNIDAZOLE;SODIUM CHLORIDE [Concomitant]
     Route: 065
     Dates: start: 20191016, end: 20191019
  11. CEFUROXIME SODIUM. [Concomitant]
     Active Substance: CEFUROXIME SODIUM
     Route: 065
     Dates: start: 20191016, end: 20191019
  12. LEUCOGEN [Concomitant]
     Active Substance: LEUCOGEN
     Indication: PLATELET COUNT DECREASED
     Route: 065
     Dates: start: 20190923, end: 20191001
  13. CARBOPLATIN. [Suspect]
     Active Substance: CARBOPLATIN
     Indication: NEOPLASM MALIGNANT
     Dosage: DOSE: AREA UNDER THE CURVE (AUC) OF 6 MG/ML/MIN?DATE OF MOST RECENT DOSE (700 MG) OF CARBOPLATIN PRI
     Route: 042
     Dates: start: 20190821
  14. POTASSIUM CHLORIDE. [Concomitant]
     Active Substance: POTASSIUM CHLORIDE
     Route: 065
     Dates: start: 20191016, end: 20191019
  15. DEXAMETHASONE ACETATE [Concomitant]
     Active Substance: DEXAMETHASONE ACETATE
     Route: 065
     Dates: start: 20191008, end: 20191009
  16. DIPHENHYDRAMINE HYDROCHLORIDE. [Concomitant]
     Active Substance: DIPHENHYDRAMINE HYDROCHLORIDE
     Route: 065
     Dates: start: 20191009, end: 20191009
  17. CIMETIDINE [Concomitant]
     Active Substance: CIMETIDINE
     Route: 065
     Dates: start: 20191009, end: 20191009

REACTIONS (1)
  - Mechanical ileus [Recovered/Resolved]

NARRATIVE: CASE EVENT DATE: 20191016
